FAERS Safety Report 6426483-3 (Version None)
Quarter: 2009Q4

REPORT INFORMATION
  Report Type: 
  Country: None (occurrence: None)
  Receive Date: 20091030
  Receipt Date: 20091019
  Transmission Date: 20100525
  Serious: Yes (Hospitalization)
  Sender: FDA-Public Use
  Company Number: 2009-03375

PATIENT

DRUGS (1)
  1. VELCADE [Suspect]
     Indication: ADENOCARCINOMA
     Dosage: 1.3 MG/M2, INTRAVENOUS
     Route: 042
     Dates: start: 20090610, end: 20090819

REACTIONS (9)
  - CONSTIPATION [None]
  - DYSPHAGIA [None]
  - GASTRIC CANCER [None]
  - MALAISE [None]
  - MALIGNANT NEOPLASM PROGRESSION [None]
  - NAUSEA [None]
  - OESOPHAGEAL ADENOCARCINOMA [None]
  - PAIN [None]
  - VOMITING [None]
